FAERS Safety Report 10163287 (Version 1)
Quarter: 2014Q2

REPORT INFORMATION
  Report Type: Spontaneous
  Country: US (occurrence: US)
  Receive Date: 20140509
  Receipt Date: 20140509
  Transmission Date: 20141212
  Serious: No
  Sender: FDA-Public Use
  Company Number: US-PFIZER INC-2014124271

PATIENT
  Age: 71 Year
  Sex: Female
  Weight: 91 kg

DRUGS (7)
  1. AZITHROMYCIN [Suspect]
     Indication: BRONCHITIS
     Dosage: UNK
     Dates: start: 201403, end: 2014
  2. WELLBUTRIN [Concomitant]
     Indication: DEPRESSION
     Dosage: UNK
  3. COREG [Concomitant]
     Dosage: UNK
  4. LEVAQUIN [Concomitant]
     Indication: BRONCHITIS
     Dosage: 500 MG, UNK
  5. DECADRON [Concomitant]
     Indication: BRONCHITIS
     Dosage: UNK, WEEKLY
     Dates: start: 201403, end: 201404
  6. PREVACID [Concomitant]
     Indication: BRONCHITIS
     Dosage: UNK
  7. DIOVAN [Concomitant]
     Indication: HYPERTENSION
     Dosage: UNK

REACTIONS (1)
  - Drug ineffective [Unknown]
